FAERS Safety Report 16363666 (Version 1)
Quarter: 2019Q2

REPORT INFORMATION
  Report Type: Spontaneous
  Country: US (occurrence: US)
  Receive Date: 20190528
  Receipt Date: 20190528
  Transmission Date: 20190711
  Serious: No
  Sender: FDA-Public Use
  Company Number: US-ASTRAZENECA-2019SE76709

PATIENT
  Age: 22376 Day
  Sex: Male
  Weight: 101.2 kg

DRUGS (4)
  1. ATENOLOL. [Suspect]
     Active Substance: ATENOLOL
     Indication: HYPERTENSION
     Dosage: EVERY DAY
     Route: 048
     Dates: start: 2007
  2. SYMBICORT [Suspect]
     Active Substance: BUDESONIDE\FORMOTEROL FUMARATE DIHYDRATE
     Indication: DYSPNOEA
     Dosage: 2 PUFFS TWICE A DAY
     Route: 055
     Dates: start: 20190418
  3. AMLODIPINE [Concomitant]
     Active Substance: AMLODIPINE BESYLATE
     Indication: HYPERTENSION
     Dosage: EVERY DAY
     Route: 048
     Dates: start: 2007
  4. SINGULAIR [Concomitant]
     Active Substance: MONTELUKAST SODIUM

REACTIONS (8)
  - Eye pain [Not Recovered/Not Resolved]
  - Myopia [Not Recovered/Not Resolved]
  - Dyspnoea [Unknown]
  - Hypermetropia [Not Recovered/Not Resolved]
  - Eyelid pain [Not Recovered/Not Resolved]
  - Arthralgia [Not Recovered/Not Resolved]
  - Gingival pain [Not Recovered/Not Resolved]
  - Visual impairment [Not Recovered/Not Resolved]

NARRATIVE: CASE EVENT DATE: 20190515
